FAERS Safety Report 8186586-2 (Version None)
Quarter: 2012Q1

REPORT INFORMATION
  Report Type: 
  Country: None (occurrence: None)
  Receive Date: 20120302
  Receipt Date: 20120302
  Transmission Date: 20120608
  Serious: No
  Sender: FDA-Public Use
  Company Number: None

PATIENT
  Sex: Female
  Weight: 75 kg

DRUGS (3)
  1. BEVACIZUMAB (RHUMAB VEGF) [Suspect]
     Dosage: 21632 MG
  2. TAXOL [Suspect]
     Dosage: 2304 MG
  3. CARBOPLATIN [Suspect]
     Dosage: 548 MG

REACTIONS (1)
  - HYPOMAGNESAEMIA [None]
